FAERS Safety Report 10572147 (Version 1)
Quarter: 2014Q4

REPORT INFORMATION
  Report Type: Spontaneous
  Country: US (occurrence: US)
  Receive Date: 20141107
  Receipt Date: 20141107
  Transmission Date: 20150529
  Serious: No
  Sender: FDA-Public Use
  Company Number: US-ASTRAZENECA-2014SE84210

PATIENT
  Sex: Female

DRUGS (4)
  1. NEXIUM [Suspect]
     Active Substance: ESOMEPRAZOLE MAGNESIUM
     Route: 048
  2. AMITIZA [Suspect]
     Active Substance: LUBIPROSTONE
     Indication: CONSTIPATION
     Route: 065
  3. NEXIUM [Suspect]
     Active Substance: ESOMEPRAZOLE MAGNESIUM
     Route: 048
  4. NEXIUM 24HR [Suspect]
     Active Substance: ESOMEPRAZOLE MAGNESIUM
     Route: 048

REACTIONS (10)
  - Nasal dryness [Unknown]
  - Nasal congestion [Not Recovered/Not Resolved]
  - Eye oedema [Not Recovered/Not Resolved]
  - Abdominal pain upper [Not Recovered/Not Resolved]
  - Balance disorder [Unknown]
  - Hypersensitivity [Unknown]
  - Accidental overdose [Unknown]
  - Pruritus [Unknown]
  - Feeling abnormal [Unknown]
  - Off label use [Unknown]
